FAERS Safety Report 22316553 (Version 5)
Quarter: 2024Q3

REPORT INFORMATION
  Report Type: Report from Study
  Country: US (occurrence: US)
  Receive Date: 20230513
  Receipt Date: 20240925
  Transmission Date: 20241017
  Serious: Yes (Other)
  Sender: NOVARTIS
  Company Number: US-002147023-NVSC2023US107443

PATIENT
  Age: 93 Year
  Sex: Female

DRUGS (1)
  1. PROMACTA [Suspect]
     Active Substance: ELTROMBOPAG OLAMINE
     Indication: Product used for unknown indication
     Dosage: 25 MG, QD
     Route: 048
     Dates: start: 20231229, end: 20240904

REACTIONS (3)
  - Dementia [Unknown]
  - Diarrhoea [Unknown]
  - Platelet count increased [Unknown]

NARRATIVE: CASE EVENT DATE: 20240904
